FAERS Safety Report 8488867-1 (Version None)
Quarter: 2012Q3

REPORT INFORMATION
  Report Type: 
  Country: None (occurrence: None)
  Receive Date: 20120705
  Receipt Date: 20120626
  Transmission Date: 20120928
  Serious: Yes (Life-Threatening, Hospitalization)
  Sender: FDA-Public Use
  Company Number: DE-ELI_LILLY_AND_COMPANY-DE201201002494

PATIENT
  Age: 59 Year
  Sex: Male
  Weight: 73 kg

DRUGS (5)
  1. NECITUMUMAB (11F8) (LY3012211) [Suspect]
     Dosage: 800 MG, UNK
     Dates: start: 20111124
  2. CISPLATIN [Suspect]
     Dosage: 142 MG, UNK
     Dates: start: 20111124
  3. GEMCITABINE HYDROCHLORIDE [Suspect]
     Dosage: 2360 MG, UNK
     Dates: start: 20111124
  4. METOCLOPRAMIDE [Concomitant]
     Indication: NAUSEA
     Dosage: UNK
     Dates: start: 20111223
  5. BUDESONIDE [Concomitant]
     Indication: DYSPNOEA EXERTIONAL
     Dosage: UNK
     Dates: start: 20110101

REACTIONS (1)
  - PULMONARY EMBOLISM [None]
